FAERS Safety Report 17564306 (Version 2)
Quarter: 2020Q1

REPORT INFORMATION
  Report Type: Spontaneous
  Country: BR (occurrence: BR)
  Receive Date: 20200320
  Receipt Date: 20200331
  Transmission Date: 20200409
  Serious: Yes (Other)
  Sender: FDA-Public Use
  Company Number: BR-SA-2020SA065145

PATIENT
  Age: 61 Year
  Sex: Female
  Weight: 91 kg

DRUGS (6)
  1. STILNOX CPR [Concomitant]
     Indication: SLEEP DISORDER
     Dosage: 1 DF, HS
     Route: 048
  2. DIAMICRON [Concomitant]
     Active Substance: GLICLAZIDE
     Dosage: 30 MG
  3. LANTUS SOLOSTAR [Suspect]
     Active Substance: INSULIN GLARGINE
     Indication: TYPE 2 DIABETES MELLITUS
     Dosage: 27 IU, QD,IN THE MORNING
     Route: 065
  4. FLUXOCOR [DIPYRIDAMOLE] [Concomitant]
     Indication: HYPERTENSION
     Dosage: 1 DF, QD,IN THE MORNING
     Route: 048
  5. CORTISONA [Concomitant]
     Active Substance: HYDROCORTISONE
     Indication: PURPURA
     Dosage: 3 TABLETS IN THE SAME MOMENT
     Route: 048
  6. VYTORIN [Concomitant]
     Active Substance: EZETIMIBE\SIMVASTATIN
     Indication: BLOOD CHOLESTEROL
     Dosage: 01 DF, HS,AT NIGHT
     Route: 048

REACTIONS (3)
  - Product dose omission [Unknown]
  - Inability to afford medication [Unknown]
  - Drug dependence [Unknown]
